FAERS Safety Report 9539162 (Version 1)
Quarter: 2013Q2

REPORT INFORMATION
  Report Type: Spontaneous
  Country: US (occurrence: None)
  Receive Date: 20130521
  Receipt Date: 20130521
  Transmission Date: 20140414
  Serious: No
  Sender: FDA-Public Use
  Company Number: 1000044602

PATIENT
  Age: 72 Year
  Sex: Male

DRUGS (7)
  1. TUDORZA PRESSAIR [Suspect]
     Indication: CHRONIC OBSTRUCTIVE PULMONARY DISEASE
     Dosage: 880 MCG (400 MCG, 2 IN 1 D), ORAL
     Route: 048
     Dates: start: 20130412, end: 20130414
  2. ALBUTEROL (ALBUTEROL) (ALBUTEROL) [Concomitant]
  3. PERFOROMIST (FORMOTEROL FUMARATE) (FORMOTEROL FUMARATE) [Concomitant]
  4. BUDESONIDE (BUDESONIDE) (BUDESONIDE) [Concomitant]
  5. PREDNISONE (PREDNISONE) (PREDNISONE) [Concomitant]
  6. TERAZOSIN (TERAZOSIN) (TERAZOSIN) [Concomitant]
  7. DALIRESP (ROFLUMILAST) (ROFLUMILAST) [Concomitant]

REACTIONS (3)
  - Drug ineffective [None]
  - Cough [None]
  - Haemoptysis [None]
